FAERS Safety Report 6745662-9 (Version None)
Quarter: 2010Q2

REPORT INFORMATION
  Report Type: 
  Country: None (occurrence: None)
  Receive Date: 20100526
  Receipt Date: 20080717
  Transmission Date: 20101027
  Serious: Yes (Hospitalization)
  Sender: FDA-Public Use
  Company Number: LEO-2010-00428

PATIENT
  Sex: Male
  Weight: 2.3 kg

DRUGS (5)
  1. INNOHEP [Suspect]
     Indication: DRUG EXPOSURE DURING PREGNANCY
     Dosage: TRANSPLACENTAL
     Route: 064
     Dates: start: 20020118, end: 20020807
  2. SERETIDE (FLUTICASONE PROPIONATE, SALMETEROL XINAFOATE) [Concomitant]
  3. SALBUTAMOL (SALBUTAMOL) [Concomitant]
  4. PHYLLOCONTIN (AMINOPHYLLINE) [Concomitant]
  5. GALFER (FERROUS FUMARATE) [Concomitant]

REACTIONS (2)
  - MATERNAL DRUGS AFFECTING FOETUS [None]
  - PREMATURE BABY [None]
